FAERS Safety Report 20973542 (Version 1)
Quarter: 2022Q2

REPORT INFORMATION
  Report Type: Spontaneous
  Country: VN (occurrence: None)
  Receive Date: 20220617
  Receipt Date: 20220617
  Transmission Date: 20220721
  Serious: Yes (Hospitalization)
  Sender: FDA-Public Use
  Company Number: VN-ROCHE-3116049

PATIENT
  Age: 11 Year
  Sex: Male

DRUGS (4)
  1. EMICIZUMAB [Suspect]
     Active Substance: EMICIZUMAB
     Indication: Factor VIII deficiency
     Route: 065
  2. EMICIZUMAB [Suspect]
     Active Substance: EMICIZUMAB
     Dosage: 9 DOSES
     Route: 065
     Dates: start: 202103, end: 202107
  3. EMICIZUMAB [Suspect]
     Active Substance: EMICIZUMAB
     Dosage: 5 DOSES
     Route: 065
     Dates: start: 202204, end: 202205
  4. ACETAMINOPHEN [Concomitant]
     Active Substance: ACETAMINOPHEN
     Route: 048

REACTIONS (2)
  - Groin pain [Unknown]
  - Pyrexia [Unknown]
